FAERS Safety Report 5152715-8 (Version None)
Quarter: 2006Q4

REPORT INFORMATION
  Report Type: 
  Country: None (occurrence: None)
  Receive Date: 20061109
  Receipt Date: 20061113
  Transmission Date: 20070319
  Serious: Yes (Hospitalization)
  Sender: FDA-Public Use
  Company Number: 163-20785-06100004

PATIENT
  Age: 42 Year
  Sex: Male

DRUGS (6)
  1. THALOMID [Suspect]
     Indication: BRAIN NEOPLASM
     Dosage: 400 MG , DAILY, ORAL
     Route: 048
     Dates: start: 20060616
  2. COUMADIN [Suspect]
     Indication: PULMONARY EMBOLISM
  3. TEMODAR [Concomitant]
  4. ZOFRAN [Concomitant]
  5. DECADRON [Concomitant]
  6. LAMICTAL [Concomitant]

REACTIONS (2)
  - INTERNATIONAL NORMALISED RATIO INCREASED [None]
  - RECTAL HAEMORRHAGE [None]
